FAERS Safety Report 4668763-8 (Version None)
Quarter: 2005Q2

REPORT INFORMATION
  Report Type: 
  Country: None (occurrence: None)
  Receive Date: 20050519
  Receipt Date: 20050516
  Transmission Date: 20051028
  Serious: Yes (Death, Hospitalization)
  Sender: FDA-Public Use
  Company Number: 2005-01672

PATIENT
  Age: 29 Year
  Sex: Female

DRUGS (4)
  1. PREDNISOLONE [Suspect]
     Indication: MIXED CONNECTIVE TISSUE DISEASE
     Dosage: SEE IMAGE
     Route: 048
     Dates: end: 19991001
  2. PREDNISOLONE [Suspect]
     Indication: MIXED CONNECTIVE TISSUE DISEASE
     Dosage: SEE IMAGE
     Route: 048
     Dates: start: 19991001, end: 19991201
  3. PREDNISOLONE [Suspect]
     Indication: MIXED CONNECTIVE TISSUE DISEASE
     Dosage: SEE IMAGE
     Route: 048
     Dates: start: 20000101, end: 20000101
  4. CHLOROQUINE (WATSON LABORATORIES) (CHLOROQUINE PHOSPHATE) TABLET, 250M [Suspect]
     Indication: MIXED CONNECTIVE TISSUE DISEASE
     Dosage: 250 MG, DAILY, ORAL
     Route: 048
     Dates: start: 19991201

REACTIONS (3)
  - HEPATIC FAILURE [None]
  - HEPATIC FIBROSIS [None]
  - HEPATITIS CHOLESTATIC [None]
